FAERS Safety Report 8996833 (Version 1)
Quarter: 2012Q4

REPORT INFORMATION
  Report Type: Spontaneous
  Country: US (occurrence: None)
  Receive Date: 20121228
  Receipt Date: 20121228
  Transmission Date: 20130627
  Serious: Yes (Disabling)
  Sender: FDA-Public Use
  Company Number: None

PATIENT
  Age: 88 Year
  Sex: Female
  Weight: 68.04 kg

DRUGS (1)
  1. LEVOFLOXACIN [Suspect]
     Dosage: 1 pill  daily
     Dates: start: 20121204, end: 20121208

REACTIONS (5)
  - Pain in extremity [None]
  - Muscle swelling [None]
  - Gait disturbance [None]
  - Weight bearing difficulty [None]
  - Joint stiffness [None]
